FAERS Safety Report 10034579 (Version 1)
Quarter: 2014Q1

REPORT INFORMATION
  Report Type: Spontaneous
  Country: GB (occurrence: GB)
  Receive Date: 20140325
  Receipt Date: 20140325
  Transmission Date: 20141002
  Serious: Yes (Hospitalization)
  Sender: FDA-Public Use
  Company Number: GB-MYLANLABS-2014S1006120

PATIENT
  Age: 50 Year
  Sex: Female

DRUGS (5)
  1. PHENYTOIN [Suspect]
     Dosage: 300MG DAILY
     Route: 065
  2. RAMIPRIL [Concomitant]
     Dosage: 2.5MG DAILY
     Route: 065
  3. THIAMINE [Concomitant]
     Route: 065
  4. VITAMIN B COMPLEX [Concomitant]
     Route: 065
  5. FOLIC ACID [Concomitant]
     Dosage: 5MG DAILY
     Route: 065

REACTIONS (10)
  - Toxicity to various agents [Recovering/Resolving]
  - Fall [Recovering/Resolving]
  - Head injury [Unknown]
  - Nystagmus [Unknown]
  - Intention tremor [Unknown]
  - Past-pointing [Unknown]
  - Dysarthria [Unknown]
  - Ataxia [Unknown]
  - Gingival hypertrophy [Unknown]
  - Hirsutism [Unknown]
